FAERS Safety Report 18254993 (Version 1)
Quarter: 2020Q3

REPORT INFORMATION
  Report Type: Spontaneous
  Country: SE (occurrence: SE)
  Receive Date: 20200911
  Receipt Date: 20200911
  Transmission Date: 20201103
  Serious: Yes (Other)
  Sender: FDA-Public Use
  Company Number: SE-009507513-2009SWE002258

PATIENT
  Age: 24 Year
  Sex: Female
  Weight: 63 kg

DRUGS (1)
  1. NUVARING [Suspect]
     Active Substance: ETHINYL ESTRADIOL\ETONOGESTREL
     Indication: CONTRACEPTION
     Dosage: NUVARING 0.120 MG/0.015 MG PER 24 HOURS VAGINAL DELIVERY SYSTEM
     Dates: start: 20160302, end: 20200701

REACTIONS (4)
  - Genito-pelvic pain/penetration disorder [Not Recovered/Not Resolved]
  - Depression [Not Recovered/Not Resolved]
  - Libido decreased [Not Recovered/Not Resolved]
  - Vestibulitis [Not Recovered/Not Resolved]

NARRATIVE: CASE EVENT DATE: 20180701
